FAERS Safety Report 6042221-0 (Version None)
Quarter: 2009Q1

REPORT INFORMATION
  Report Type: 
  Country: None (occurrence: None)
  Receive Date: 20090116
  Receipt Date: 20090112
  Transmission Date: 20090719
  Serious: Yes (Other)
  Sender: FDA-Public Use
  Company Number: US-JNJFOC-20080902934

PATIENT
  Sex: Male
  Weight: 72.58 kg

DRUGS (1)
  1. TRETINOIN [Suspect]
     Indication: ACNE

REACTIONS (1)
  - THERMAL BURN [None]
